FAERS Safety Report 6608811 (Version 21)
Quarter: 2014Q1

REPORT INFORMATION
  Report Type: Spontaneous
  Country: US (occurrence: US)
  Receive Date: 20080407
  Receipt Date: 20140305
  Transmission Date: 20141002
  Serious: Yes (Death, Hospitalization, Other)
  Sender: FDA-Public Use
  Company Number: PHEH2008US03145

PATIENT
  Age: 43 Year
  Sex: Female

DRUGS (43)
  1. AREDIA [Suspect]
     Route: 042
  2. ZOMETA [Suspect]
     Indication: NEOPLASM MALIGNANT
     Route: 042
     Dates: start: 200507
  3. ZOMETA [Suspect]
     Route: 042
     Dates: start: 200606
  4. GABAPENTIN [Suspect]
     Route: 048
  5. METHADONE [Concomitant]
  6. ZITHROMAX ^HEINRICH MACK^ [Concomitant]
  7. OXYCODONE [Concomitant]
  8. AMOXICILLIN [Concomitant]
  9. NIFEREX (POLYSACCHARIDE-IRON COMPLEX) [Concomitant]
  10. CYTOXAN [Concomitant]
  11. DOXORUBICIN [Concomitant]
  12. METRONIDAZOL ^ALPHARMA^ [Concomitant]
  13. ZANAFLEX [Concomitant]
     Dosage: 2 MG,
     Route: 048
  14. LORAZEPAM [Concomitant]
     Dosage: 2 MG,
     Route: 048
  15. LIDODERM [Concomitant]
     Dosage: 5 %,
     Route: 061
  16. SULFAMETHOXYPYRAZINE/TRIMETHOPRIM [Concomitant]
     Dosage: 800-160 MG,
     Route: 048
  17. LYRICA [Concomitant]
     Dosage: 100 MG,
     Route: 048
  18. EFFEXOR-XR [Concomitant]
     Dosage: 75 MG,
     Route: 048
  19. IBUPROFEN [Concomitant]
     Dosage: 800 MG,
     Route: 048
  20. TEMAZEPAM [Concomitant]
     Dosage: 15 MG,
     Route: 048
  21. BACLOFEN [Concomitant]
     Dosage: 20 MG,
     Route: 048
  22. POLYETHYLENE GLYCOL [Concomitant]
     Route: 048
  23. MILK OF MAGNESIA [Concomitant]
     Route: 048
  24. DIAZEPAM [Concomitant]
     Dosage: 5 MG, PRN
     Route: 048
  25. METOPROLOL SUCCINATE [Concomitant]
     Dosage: 100 MG,
     Route: 048
  26. PROCHLORPERAZINE [Concomitant]
     Dosage: 10 MG,
     Route: 048
  27. XELODA [Concomitant]
     Dosage: 500 MG,
     Route: 048
  28. AMBIEN [Concomitant]
     Dosage: 6.25 MG,
     Route: 048
  29. MORPHINE [Concomitant]
     Dosage: 30 MG,
     Route: 048
  30. DILAUDID [Concomitant]
  31. HERCEPTIN ^GENENTECH^ [Concomitant]
  32. ZOLADEX [Concomitant]
  33. PEN-VEE-K [Concomitant]
  34. DEXAMETHASONE [Concomitant]
  35. GEMCITABINE HYDROCHLORIDE [Concomitant]
  36. OXYCONTIN [Concomitant]
  37. MSIR [Concomitant]
  38. VALIUM [Concomitant]
  39. MIDRIN [Concomitant]
  40. MULTIVITAMINS [Concomitant]
  41. QUADRAMET [Concomitant]
  42. FEMARA [Concomitant]
  43. FENTANYL [Concomitant]

REACTIONS (97)
  - Death [Fatal]
  - Intervertebral disc degeneration [Unknown]
  - Arthritis [Unknown]
  - Bedridden [Unknown]
  - Lethargy [Unknown]
  - Depression [Unknown]
  - Paraplegia [Unknown]
  - Neurogenic bladder [Unknown]
  - Urinary incontinence [Unknown]
  - Spinal osteoarthritis [Unknown]
  - Chronic obstructive pulmonary disease [Unknown]
  - Osteonecrosis of jaw [Unknown]
  - Pain [Unknown]
  - Infection [Unknown]
  - Scar [Unknown]
  - Injury [Unknown]
  - Emotional distress [Unknown]
  - Anxiety [Unknown]
  - Physical disability [Unknown]
  - Pathological fracture [Unknown]
  - Spinal fracture [Unknown]
  - Metastases to spine [Unknown]
  - Atelectasis [Unknown]
  - Metastases to liver [Unknown]
  - Compression fracture [Unknown]
  - Pelvic fracture [Unknown]
  - Femur fracture [Unknown]
  - Tooth infection [Unknown]
  - Faecal incontinence [Unknown]
  - Back pain [Unknown]
  - Insomnia [Unknown]
  - Muscle spasms [Unknown]
  - Fall [Unknown]
  - Constipation [Unknown]
  - Kyphosis [Unknown]
  - Asthenia [Unknown]
  - Syncope [Unknown]
  - Osteopenia [Unknown]
  - Osteoporosis [Unknown]
  - Convulsion [Unknown]
  - Loss of consciousness [Unknown]
  - Lung infiltration [Unknown]
  - Delirium [Unknown]
  - Neutropenia [Unknown]
  - Pneumonia [Unknown]
  - Dyspnoea [Unknown]
  - Overdose [Unknown]
  - Arthralgia [Unknown]
  - Metastases to bone [Unknown]
  - Osteonecrosis [Unknown]
  - Diarrhoea [Unknown]
  - Nausea [Unknown]
  - Vomiting [Unknown]
  - Oedema peripheral [Unknown]
  - Ligament sprain [Unknown]
  - Fungal infection [Unknown]
  - Gait disturbance [Unknown]
  - Swelling [Unknown]
  - Musculoskeletal stiffness [Unknown]
  - Hypoaesthesia [Unknown]
  - Hypertension [Unknown]
  - Confusional state [Unknown]
  - Oral discomfort [Unknown]
  - Exposed bone in jaw [Unknown]
  - Intervertebral disc space narrowing [Unknown]
  - Vertebral osteophyte [Unknown]
  - Tooth abscess [Unknown]
  - Dystrophic calcification [Unknown]
  - Spondylolisthesis [Unknown]
  - Spinal column stenosis [Unknown]
  - Vertebral foraminal stenosis [Unknown]
  - Metastases to central nervous system [Unknown]
  - Mental impairment [Unknown]
  - Memory impairment [Unknown]
  - Cardiomegaly [Unknown]
  - Renal disorder [Unknown]
  - Neck pain [Unknown]
  - Paraesthesia [Unknown]
  - Hyperreflexia [Unknown]
  - Clonus [Unknown]
  - Fatigue [Unknown]
  - Osteosclerosis [Unknown]
  - Joint dislocation [Unknown]
  - Bone pain [Unknown]
  - Anaemia [Unknown]
  - Tumour necrosis [Unknown]
  - Dysphagia [Unknown]
  - Intervertebral disc protrusion [Unknown]
  - Osteoarthritis [Unknown]
  - Muscle oedema [Unknown]
  - Hallucination [Unknown]
  - Rhonchi [Unknown]
  - Osteomyelitis [Unknown]
  - Device failure [Unknown]
  - Pain in jaw [Unknown]
  - Pain in extremity [Unknown]
  - Musculoskeletal chest pain [Unknown]
